FAERS Safety Report 13179561 (Version 1)
Quarter: 2017Q1

REPORT INFORMATION
  Report Type: Spontaneous
  Country: JP (occurrence: JP)
  Receive Date: 20170202
  Receipt Date: 20170202
  Transmission Date: 20170428
  Serious: Yes (Death)
  Sender: FDA-Public Use
  Company Number: JP-TEVA-735256ISR

PATIENT
  Age: 3 Month
  Sex: Male

DRUGS (11)
  1. TETRABIK [Suspect]
     Active Substance: DIPHTHERIA AND TETANUS TOXOIDS AND ACELLULAR PERTUSSIS ADSORBED AND INACTIVATED POLIOVIRUS VACCINE
     Route: 058
     Dates: start: 20170106, end: 20170106
  2. SYNAGIS [Concomitant]
     Active Substance: PALIVIZUMAB
     Indication: ANTIVIRAL PROPHYLAXIS
     Route: 030
     Dates: start: 20161219
  3. SYNAGIS [Concomitant]
     Active Substance: PALIVIZUMAB
     Route: 030
     Dates: start: 20170106
  4. THYRADIN [Concomitant]
     Active Substance: LEVOTHYROXINE
     Indication: HYPOTHYROIDISM
     Dosage: 5 MICROGRAM DAILY;
     Route: 048
  5. ACTHIB [Concomitant]
     Active Substance: HAEMOPHILUS B CONJUGATE VACCINE (TETANUS TOXOID CONJUGATE)\HAEMOPHILUS INFLUENZAE TYPE B STRAIN 1482 CAPSULAR POLYSACCHARIDE TETANUS TOXOID CONJUGATE ANTIGEN
     Dosage: .5 ML DAILY;
     Route: 058
     Dates: start: 20161219, end: 20161219
  6. INCREMIN [Concomitant]
     Active Substance: FERRIC PYROPHOSPHATE
     Indication: ANAEMIA NEONATAL
     Dosage: 2 ML DAILY;
     Route: 048
  7. PREVENAR [Concomitant]
     Active Substance: PNEUMOCOCCAL 7-VALENT CONJUGATE VACCINE (DIPHTHERIA CRM197 PROTEIN)
     Route: 051
     Dates: start: 20161219, end: 20161219
  8. URSO [Suspect]
     Active Substance: URSODIOL
     Indication: CHOLESTASIS
     Dosage: 25 MILLIGRAM DAILY;
     Route: 048
  9. HEPTAVAX B [Suspect]
     Active Substance: HEPATITIS B VIRUS VACCINE
     Route: 058
     Dates: start: 20170106, end: 20170106
  10. ALFAROL [Concomitant]
     Active Substance: ALFACALCIDOL
     Dosage: .1 MICROGRAM DAILY;
     Route: 048
  11. PANVITAN [Concomitant]
     Dosage: .2 ML DAILY;
     Route: 048

REACTIONS (1)
  - Cardio-respiratory arrest [Fatal]

NARRATIVE: CASE EVENT DATE: 20170110
